FAERS Safety Report 9760458 (Version 1)
Quarter: 2013Q4

REPORT INFORMATION
  Report Type: Spontaneous
  Country: US (occurrence: US)
  Receive Date: 20131216
  Receipt Date: 20131216
  Transmission Date: 20140711
  Serious: Yes (Hospitalization, Other)
  Sender: FDA-Public Use
  Company Number: US-BRISTOL-MYERS SQUIBB COMPANY-19889815

PATIENT
  Age: 82 Year
  Sex: Male
  Weight: 73.47 kg

DRUGS (2)
  1. ABILIFY TABS 5 MG [Suspect]
     Indication: DEPRESSION
     Dosage: AUG OR SEP:ABILIFY 5MG TABS
     Dates: start: 201307
  2. WARFARIN POTASSIUM [Suspect]

REACTIONS (4)
  - Cerebrovascular accident [Unknown]
  - Age-related macular degeneration [Unknown]
  - Wrong technique in drug usage process [Unknown]
  - Drug ineffective [Unknown]
